FAERS Safety Report 6656595-0 (Version None)
Quarter: 2010Q1

REPORT INFORMATION
  Report Type: 
  Country: None (occurrence: None)
  Receive Date: 20100329
  Receipt Date: 20100317
  Transmission Date: 20100710
  Serious: Yes (Death, Hospitalization, Other)
  Sender: FDA-Public Use
  Company Number: JP-AMGEN-US402285

PATIENT
  Age: 56 Year
  Sex: Male

DRUGS (3)
  1. ENBREL [Suspect]
     Indication: RHEUMATOID ARTHRITIS
     Route: 058
     Dates: end: 20100307
  2. CALCIUM CARBONATE [Concomitant]
     Dosage: UNKNOWN
     Route: 048
  3. PARIET [Concomitant]
     Dosage: UNKNOWN
     Route: 048

REACTIONS (10)
  - ANAPHYLACTOID REACTION [None]
  - DIALYSIS [None]
  - DIARRHOEA [None]
  - FACE OEDEMA [None]
  - INFLUENZA LIKE ILLNESS [None]
  - NASOPHARYNGITIS [None]
  - PANCYTOPENIA [None]
  - SEPSIS [None]
  - SHOCK HAEMORRHAGIC [None]
  - STOMATITIS [None]
